FAERS Safety Report 24544639 (Version 1)
Quarter: 2024Q4

REPORT INFORMATION
  Report Type: Spontaneous
  Country: PL (occurrence: PL)
  Receive Date: 20241024
  Receipt Date: 20241024
  Transmission Date: 20250115
  Serious: Yes (Other)
  Sender: PFIZER
  Company Number: PL-PFIZER INC-PV202400136842

PATIENT
  Age: 49 Year
  Sex: Female

DRUGS (5)
  1. CLINDAMYCIN HYDROCHLORIDE [Interacting]
     Active Substance: CLINDAMYCIN HYDROCHLORIDE
     Indication: Oral infection
     Dosage: 600 MG, 3X/DAY FOR 5 DAYS
  2. RIBOCICLIB [Interacting]
     Active Substance: RIBOCICLIB
     Indication: Hormone receptor positive breast cancer
     Dosage: 600 MG, DAILY, FOR 21 DAYS, FOLLOWED BY 7 DAYS OFF
  3. ZOLEDRONIC ACID [Concomitant]
     Active Substance: ZOLEDRONIC ACID
     Dosage: 4 MG, CYCLIC, EVERY 4 WEEKS AND SUBSEQUENTLY EVERY 8-12 WEEKS
  4. LETROZOLE [Concomitant]
     Active Substance: LETROZOLE
     Dosage: 2.5 MG, DAILY
  5. GOSERELIN [Concomitant]
     Active Substance: GOSERELIN
     Dosage: 3.6 MG, CYCLIC, ONCE EVERY 28 DAYS

REACTIONS (2)
  - Drug interaction [Unknown]
  - Drug-induced liver injury [Recovered/Resolved]
